FAERS Safety Report 8089120-0 (Version None)
Quarter: 2012Q1

REPORT INFORMATION
  Report Type: 
  Country: None (occurrence: None)
  Receive Date: 20120128
  Receipt Date: 20110624
  Transmission Date: 20120608
  Serious: No
  Sender: FDA-Public Use
  Company Number: US-ABBOTT-11P-163-0834627-00

PATIENT
  Age: 45 Year
  Sex: Male

DRUGS (3)
  1. HUMIRA [Suspect]
     Indication: PSORIASIS
     Dates: start: 20110401
  2. METHYLPHENIDATE [Concomitant]
     Indication: NARCOLEPSY
     Dosage: 5 MG - 6 TIMES PER DAY
     Route: 048
  3. LEXAPRO [Concomitant]
     Indication: DEPRESSION
     Dosage: 20 MG
     Route: 048

REACTIONS (1)
  - PSORIASIS [None]
